FAERS Safety Report 6180768-7 (Version None)
Quarter: 2009Q2

REPORT INFORMATION
  Report Type: 
  Country: None (occurrence: None)
  Receive Date: 20090506
  Receipt Date: 20081210
  Transmission Date: 20091009
  Serious: No
  Sender: FDA-Public Use
  Company Number: A0760012A

PATIENT
  Sex: Female

DRUGS (2)
  1. AMOXICILLIN [Suspect]
     Indication: DRUG USE FOR UNKNOWN INDICATION
     Dosage: 500MG TWICE PER DAY
     Route: 048
     Dates: start: 20080401, end: 20080415
  2. M.V.I. [Concomitant]

REACTIONS (4)
  - NASAL CONGESTION [None]
  - RASH GENERALISED [None]
  - SLEEP DISORDER [None]
  - WEIGHT DECREASED [None]
